FAERS Safety Report 15358276 (Version 1)
Quarter: 2018Q3

REPORT INFORMATION
  Report Type: Spontaneous
  Country: US (occurrence: US)
  Receive Date: 20180906
  Receipt Date: 20180906
  Transmission Date: 20181010
  Serious: No
  Sender: FDA-Public Use
  Company Number: US-PERRIGO-17US027553

PATIENT
  Age: 50 Year
  Sex: Female
  Weight: 63.49 kg

DRUGS (6)
  1. SPIRONOLACTONE. [Concomitant]
     Active Substance: SPIRONOLACTONE
     Indication: ACNE CYSTIC
     Dosage: UNK
     Route: 065
     Dates: start: 2015
  2. ARMOUR THYROID [Concomitant]
     Active Substance: THYROID, PORCINE
     Indication: THYROID DISORDER
     Dosage: UNK
     Route: 065
     Dates: start: 201007
  3. DIAZEPAM. [Concomitant]
     Active Substance: DIAZEPAM
     Indication: TREMOR
     Dosage: 5 MG
     Route: 065
     Dates: start: 2007
  4. EVAMIST [Suspect]
     Active Substance: ESTRADIOL
     Indication: MENOPAUSE
     Dosage: 3.06 MCG DAILY
     Route: 062
     Dates: start: 2015
  5. ESCITALOPRAM [Concomitant]
     Active Substance: ESCITALOPRAM OXALATE
     Indication: ANXIETY
     Dosage: 5 MG
     Route: 065
     Dates: start: 2016
  6. EVAMIST [Suspect]
     Active Substance: ESTRADIOL
     Dosage: 9.18 MCG, DAILY
     Route: 062
     Dates: start: 20171010, end: 20171011

REACTIONS (2)
  - Overdose [Recovered/Resolved]
  - Migraine [Recovered/Resolved]

NARRATIVE: CASE EVENT DATE: 20171010
